FAERS Safety Report 20860042 (Version 1)
Quarter: 2022Q2

REPORT INFORMATION
  Report Type: Spontaneous
  Country: US (occurrence: US)
  Receive Date: 20220523
  Receipt Date: 20220523
  Transmission Date: 20220721
  Serious: No
  Sender: FDA-Public Use
  Company Number: US-PFIZER INC-202101383301

PATIENT
  Age: 62 Year
  Sex: Male

DRUGS (1)
  1. ENBREL [Suspect]
     Active Substance: ETANERCEPT
     Indication: Bursitis
     Dosage: 50 MILLIGRAM
     Route: 065
     Dates: end: 201506

REACTIONS (3)
  - Drug ineffective for unapproved indication [Unknown]
  - Bloody discharge [Unknown]
  - Tachyphylaxis [Unknown]
